FAERS Safety Report 10696149 (Version 5)
Quarter: 2015Q4

REPORT INFORMATION
  Report Type: Spontaneous
  Country: US (occurrence: US)
  Receive Date: 20150107
  Receipt Date: 20151208
  Transmission Date: 20160304
  Serious: Yes (Hospitalization)
  Sender: FDA-Public Use
  Company Number: US-BAYER-2015-001670

PATIENT
  Age: 30 Year
  Sex: Female
  Weight: 68.93 kg

DRUGS (2)
  1. MIRENA [Suspect]
     Active Substance: LEVONORGESTREL
     Indication: CONTRACEPTION
     Dosage: 20 MCG/24HR, CONT
     Route: 015
     Dates: start: 20080211, end: 200904
  2. MIRENA [Suspect]
     Active Substance: LEVONORGESTREL
     Indication: MENORRHAGIA

REACTIONS (9)
  - Scar [None]
  - Uterine perforation [None]
  - Emotional distress [None]
  - Medical device pain [None]
  - Injury [None]
  - Pain [None]
  - Abdominal pain [None]
  - Anxiety [None]
  - Device use error [None]

NARRATIVE: CASE EVENT DATE: 20080211
